FAERS Safety Report 5106257-6 (Version None)
Quarter: 2006Q3

REPORT INFORMATION
  Report Type: 
  Country: None (occurrence: None)
  Receive Date: 20060912
  Receipt Date: 20060830
  Transmission Date: 20061208
  Serious: Yes (Hospitalization)
  Sender: FDA-Public Use
  Company Number: 2006108320

PATIENT
  Age: 83 Year
  Sex: Female

DRUGS (3)
  1. PREDNISOLONE [Suspect]
     Indication: POLYMYALGIA RHEUMATICA
     Dosage: 80 MG (80 MG, 1 IN 1 D)
  2. FELODIPINE [Concomitant]
  3. URSODEOXYCHOLIC ACID [Concomitant]

REACTIONS (7)
  - CEREBRAL ASPERGILLOSIS [None]
  - CORNEAL DISORDER [None]
  - EXOPHTHALMOS [None]
  - EYE MOVEMENT DISORDER [None]
  - EYELID PTOSIS [None]
  - PUPILLARY REFLEX IMPAIRED [None]
  - SENSORY LOSS [None]
